FAERS Safety Report 14373176 (Version 1)
Quarter: 2018Q1

REPORT INFORMATION
  Report Type: Spontaneous
  Country: JP (occurrence: JP)
  Receive Date: 20180110
  Receipt Date: 20180110
  Transmission Date: 20180509
  Serious: Yes (Hospitalization)
  Sender: FDA-Public Use
  Company Number: JP-LUNDBECK-DKLU2042278

PATIENT
  Age: 33 Day
  Sex: Male

DRUGS (1)
  1. MYSTAN [Suspect]
     Active Substance: CLOBAZAM
     Indication: EPILEPSY
     Route: 064

REACTIONS (7)
  - Aspartate aminotransferase increased [Recovering/Resolving]
  - Liver disorder [Recovering/Resolving]
  - Alanine aminotransferase increased [Recovering/Resolving]
  - Weight gain poor [Recovering/Resolving]
  - Gamma-glutamyltransferase increased [Recovering/Resolving]
  - Lethargy [Recovering/Resolving]
  - Foetal exposure during pregnancy [Recovering/Resolving]
